FAERS Safety Report 5218840-8 (Version None)
Quarter: 2007Q1

REPORT INFORMATION
  Report Type: 
  Country: None (occurrence: None)
  Receive Date: 20070125
  Receipt Date: 20070112
  Transmission Date: 20070707
  Serious: Yes (Other)
  Sender: FDA-Public Use
  Company Number: FI-JNJFOC-20070104837

PATIENT
  Age: 14 Year
  Sex: Female

DRUGS (4)
  1. INFLIXIMAB [Suspect]
     Indication: CROHN'S DISEASE
  2. PREDNISOLONE [Concomitant]
     Indication: CROHN'S DISEASE
  3. AZATHIOPRINE [Concomitant]
     Indication: CROHN'S DISEASE
  4. MESALAZINE [Concomitant]
     Indication: CROHN'S DISEASE

REACTIONS (2)
  - CHEST PAIN [None]
  - DYSPNOEA [None]
